FAERS Safety Report 21699360 (Version 2)
Quarter: 2023Q1

REPORT INFORMATION
  Report Type: Other
  Country: MA (occurrence: None)
  Receive Date: 20221208
  Receipt Date: 20230104
  Transmission Date: 20230417
  Serious: Yes (Other)
  Sender: FDA-Public Use
  Company Number: MA-ROCHE-3233699

PATIENT

DRUGS (2)
  1. RITUXIMAB [Suspect]
     Active Substance: RITUXIMAB
     Indication: Pemphigus
     Dosage: 500MG INFUSION ON THE 6TH MONTH AND 22 PATIENTS RECEIVED A MAINTENANCE TREATMENT AT 12,18 AND 24 MON
     Route: 042
  2. PREDNISONE [Concomitant]
     Active Substance: PREDNISONE
     Dosage: 80MG AND 24MG ON THE 6TH MONTH

REACTIONS (6)
  - Pneumonia bacterial [Unknown]
  - Pericarditis [Unknown]
  - Hepatitis B reactivation [Unknown]
  - Interstitial lung disease [Unknown]
  - Infusion related reaction [Unknown]
  - Fungal infection [Unknown]
